FAERS Safety Report 6821428-6 (Version None)
Quarter: 2010Q3

REPORT INFORMATION
  Report Type: 
  Country: None (occurrence: None)
  Receive Date: 20100707
  Receipt Date: 20081017
  Transmission Date: 20110219
  Serious: No
  Sender: FDA-Public Use
  Company Number: US-PFIZER INC-2008083969

PATIENT
  Age: 44 Year
  Sex: Male
  Weight: 86.363 kg

DRUGS (5)
  1. SERTRALINE HCL [Suspect]
     Indication: DEPRESSION
     Dates: start: 20081001
  2. NORVASC [Concomitant]
     Indication: HYPERTENSION
  3. NEBIVOLOL [Concomitant]
     Indication: HYPERTENSION
  4. XANAX [Concomitant]
     Indication: ANXIETY
  5. MIRTAZAPINE [Concomitant]
     Indication: DEPRESSION

REACTIONS (4)
  - ANXIETY [None]
  - DRUG INEFFECTIVE [None]
  - FEELING JITTERY [None]
  - INSOMNIA [None]
